FAERS Safety Report 11200916 (Version 2)
Quarter: 2015Q3

REPORT INFORMATION
  Report Type: Spontaneous
  Country: JP (occurrence: JP)
  Receive Date: 20150618
  Receipt Date: 20150701
  Transmission Date: 20151125
  Serious: Yes (Other)
  Sender: FDA-Public Use
  Company Number: JP-SA-2015SA082304

PATIENT
  Age: 32 Year
  Sex: Female
  Weight: 48 kg

DRUGS (12)
  1. UTEMERIN [Concomitant]
     Active Substance: RITODRINE
     Route: 065
     Dates: start: 20131221, end: 20140220
  2. MYSLEE [Suspect]
     Active Substance: ZOLPIDEM TARTRATE
     Indication: INSOMNIA
     Route: 048
  3. DUPHASTON [Concomitant]
     Active Substance: DYDROGESTERONE
     Route: 065
     Dates: start: 20130708, end: 20130803
  4. DACTIL [Concomitant]
     Route: 065
     Dates: start: 20130804, end: 20130808
  5. FERROMIA [Concomitant]
     Active Substance: FERROUS CITRATE
     Route: 065
     Dates: start: 20131202, end: 20140226
  6. BONALON [Concomitant]
     Active Substance: ALENDRONATE SODIUM
     Route: 065
     Dates: end: 20130629
  7. MAGMITT [Concomitant]
     Active Substance: MAGNESIUM OXIDE
     Route: 065
     Dates: start: 20131227
  8. TAKEPRON [Concomitant]
     Active Substance: LANSOPRAZOLE
     Route: 065
     Dates: start: 20130529
  9. PREDNISOLONE. [Suspect]
     Active Substance: PREDNISOLONE
     Indication: STILL^S DISEASE ADULT ONSET
     Route: 048
     Dates: start: 200605
  10. PROGRAF [Suspect]
     Active Substance: TACROLIMUS\TACROLIMUS ANHYDROUS
     Indication: STILL^S DISEASE ADULT ONSET
     Route: 048
     Dates: start: 20130122
  11. CALONAL [Concomitant]
     Active Substance: ACETAMINOPHEN
     Route: 065
     Dates: start: 20131211
  12. MUCOSTA [Concomitant]
     Active Substance: REBAMIPIDE
     Route: 065
     Dates: end: 20130528

REACTIONS (7)
  - Insomnia [Not Recovered/Not Resolved]
  - Constipation [Recovered/Resolved]
  - Threatened labour [Recovered/Resolved]
  - Maternal exposure during pregnancy [Unknown]
  - Iron deficiency anaemia [Recovering/Resolving]
  - Arthralgia [Recovering/Resolving]
  - Off label use [Unknown]

NARRATIVE: CASE EVENT DATE: 20130708
